FAERS Safety Report 9023075 (Version 1)
Quarter: 2013Q1

REPORT INFORMATION
  Report Type: Spontaneous
  Country: US (occurrence: US)
  Receive Date: 20130120
  Receipt Date: 20130120
  Transmission Date: 20140127
  Serious: No
  Sender: FDA-Public Use
  Company Number: US-ALLERGAN-1215351US

PATIENT
  Sex: Male

DRUGS (4)
  1. BOTOX? [Suspect]
     Indication: FACIAL SPASM
     Dosage: 10 UNITS, SINGLE
     Route: 030
     Dates: start: 20121019, end: 20121019
  2. BOTOX? [Suspect]
     Dosage: 5 UNITS, SINGLE
     Route: 030
     Dates: start: 20121019, end: 20121019
  3. BOTOX? [Suspect]
     Dosage: 15 UNITS, SINGLE
     Route: 030
     Dates: start: 20121019, end: 20121019
  4. MEDICATION NOS [Concomitant]
     Indication: HYPERTENSION
     Dosage: UNK

REACTIONS (2)
  - Wrong technique in drug usage process [Unknown]
  - Drug ineffective [Unknown]
